FAERS Safety Report 25888083 (Version 1)
Quarter: 2025Q4

REPORT INFORMATION
  Report Type: Spontaneous
  Country: US (occurrence: US)
  Receive Date: 20251007
  Receipt Date: 20251007
  Transmission Date: 20260117
  Serious: Yes (Hospitalization, Other)
  Sender: STRIDES
  Company Number: US-STRIDES PHARMA UK LTD.-2025SP011202

PATIENT
  Age: 89 Year
  Sex: Female

DRUGS (2)
  1. PREDNISONE [Suspect]
     Active Substance: PREDNISONE
     Indication: Pain
     Dosage: 2.5 MILLIGRAM, BID, LOW DOSE
     Route: 065
  2. PREDNISONE [Suspect]
     Active Substance: PREDNISONE
     Indication: Intervertebral disc degeneration

REACTIONS (4)
  - Herpes zoster disseminated [Recovering/Resolving]
  - Encephalitis herpes [Recovering/Resolving]
  - Immunosuppression [Recovering/Resolving]
  - Off label use [Unknown]
